FAERS Safety Report 8486600-0 (Version None)
Quarter: 2012Q3

REPORT INFORMATION
  Report Type: 
  Country: None (occurrence: None)
  Receive Date: 20120703
  Receipt Date: 20120621
  Transmission Date: 20120928
  Serious: Yes (Other)
  Sender: FDA-Public Use
  Company Number: RO-ELI_LILLY_AND_COMPANY-RO201206008577

PATIENT
  Sex: Male
  Weight: 60 kg

DRUGS (5)
  1. MILGAMMA N [Concomitant]
     Dosage: UNK, QD
  2. ENCEPHABOL [Concomitant]
     Dosage: 200 MG, QD
  3. NEUROMULTIVIT [Concomitant]
     Dosage: UNK, QD
  4. STRATTERA [Suspect]
     Indication: ATTENTION DEFICIT/HYPERACTIVITY DISORDER
     Dosage: 40 MG, QD
     Route: 065
     Dates: start: 20061101, end: 20120618
  5. CHLOROQUINE PHOSPHATE [Concomitant]
     Dosage: 2 ML, QD

REACTIONS (2)
  - ALANINE AMINOTRANSFERASE INCREASED [None]
  - CHOLELITHIASIS [None]
